FAERS Safety Report 20207990 (Version 4)
Quarter: 2023Q2

REPORT INFORMATION
  Report Type: Spontaneous
  Country: US (occurrence: US)
  Receive Date: 20211220
  Receipt Date: 20230615
  Transmission Date: 20230722
  Serious: Yes (Other)
  Sender: FDA-Public Use
  Company Number: US-PFIZER INC-2020365848

PATIENT
  Age: 1 Year
  Sex: Male

DRUGS (4)
  1. BENEFIX [Suspect]
     Active Substance: COAGULATION FACTOR IX RECOMBINANT HUMAN\ISOPROPYL ALCOHOL
     Indication: Haemorrhage
     Dosage: 1X/DAY(600 UNITS (+5%) = 100 UNITS/KG DAILY X 1)
  2. BENEFIX [Suspect]
     Active Substance: COAGULATION FACTOR IX RECOMBINANT HUMAN\ISOPROPYL ALCOHOL
     Indication: Haematoma
     Dosage: 1X/DAY(800 UNITS (+5%) = 100 UNITS/KG ONCE DAILY)
  3. BENEFIX [Suspect]
     Active Substance: COAGULATION FACTOR IX RECOMBINANT HUMAN\ISOPROPYL ALCOHOL
     Dosage: ALTERNATE DAY(UNK, ALTERNATE DAY(900 UNITS (+5%) = 100 UNITS/KG EVERY OTHER DAY))
  4. BENEFIX [Suspect]
     Active Substance: COAGULATION FACTOR IX RECOMBINANT HUMAN\ISOPROPYL ALCOHOL
     Dosage: DAILY (1700 UNITS (+5%) = 100 UNITS/KG DAILY)

REACTIONS (1)
  - Haemorrhage [Unknown]
